FAERS Safety Report 7148536-7 (Version None)
Quarter: 2010Q4

REPORT INFORMATION
  Report Type: 
  Country: None (occurrence: None)
  Receive Date: 20101209
  Receipt Date: 20101203
  Transmission Date: 20110411
  Serious: Yes (Death, Other)
  Sender: FDA-Public Use
  Company Number: KR-BRISTOL-MYERS SQUIBB COMPANY-15420748

PATIENT

DRUGS (1)
  1. SPRYCEL [Suspect]
     Dosage: TABS

REACTIONS (2)
  - DEATH [None]
  - PLEURAL EFFUSION [None]
